APPROVED DRUG PRODUCT: LANSOPRAZOLE
Active Ingredient: LANSOPRAZOLE
Strength: 30MG
Dosage Form/Route: TABLET, ORALLY DISINTEGRATING, DELAYED RELEASE;ORAL
Application: A210465 | Product #002 | TE Code: AB
Applicant: DR REDDYS LABORATORIES LTD
Approved: Feb 1, 2021 | RLD: No | RS: No | Type: RX